FAERS Safety Report 25711220 (Version 1)
Quarter: 2025Q3

REPORT INFORMATION
  Report Type: Spontaneous
  Country: IL (occurrence: IL)
  Receive Date: 20250821
  Receipt Date: 20250821
  Transmission Date: 20251020
  Serious: Yes (Other)
  Sender: TEVA
  Company Number: IL-TEVA-VS-3365219

PATIENT
  Sex: Female

DRUGS (1)
  1. AMPHETAMINE SULFATE\DEXTROAMPHETAMINE [Suspect]
     Active Substance: AMPHETAMINE SULFATE\DEXTROAMPHETAMINE
     Indication: Product used for unknown indication
     Route: 065

REACTIONS (1)
  - Presyncope [Unknown]
